FAERS Safety Report 4651886-7 (Version None)
Quarter: 2005Q2

REPORT INFORMATION
  Report Type: 
  Country: None (occurrence: None)
  Receive Date: 20050504
  Receipt Date: 20050429
  Transmission Date: 20051028
  Serious: Yes (Hospitalization)
  Sender: FDA-Public Use
  Company Number: FR-GLAXOSMITHKLINE-B0379605A

PATIENT
  Age: 71 Year
  Sex: Female

DRUGS (10)
  1. CLAMOXYL [Suspect]
     Route: 048
     Dates: start: 20050211, end: 20050215
  2. RIVOTRIL [Suspect]
     Route: 048
     Dates: start: 20050213, end: 20050216
  3. DEPAKOTE [Suspect]
     Route: 048
     Dates: start: 20050213, end: 20050216
  4. FLAGYL [Concomitant]
     Route: 048
     Dates: start: 20050211, end: 20050221
  5. MOPRAL [Concomitant]
     Route: 048
     Dates: start: 20050211, end: 20050213
  6. TAHOR [Concomitant]
     Route: 065
  7. NOOTROPYL [Concomitant]
     Route: 065
  8. BETASERC [Concomitant]
     Route: 065
  9. VEINAMITOL [Concomitant]
     Route: 065
  10. EUPANTOL [Concomitant]
     Route: 065
     Dates: start: 20050213, end: 20050222

REACTIONS (8)
  - ECZEMA [None]
  - EPIDERMAL NECROSIS [None]
  - LYMPHOPENIA [None]
  - PRURITUS [None]
  - RASH PAPULAR [None]
  - RASH PUSTULAR [None]
  - SKIN DISORDER [None]
  - TOXIC SKIN ERUPTION [None]
